FAERS Safety Report 5828314-9 (Version None)
Quarter: 2008Q3

REPORT INFORMATION
  Report Type: 
  Country: None (occurrence: None)
  Receive Date: 20080721
  Receipt Date: 20080425
  Transmission Date: 20090109
  Serious: Yes (Other)
  Sender: FDA-Public Use
  Company Number: 200813203

PATIENT
  Age: 57 Year
  Sex: Female

DRUGS (4)
  1. VIVAGLOBIN [Suspect]
     Indication: AMYLOIDOSIS
     Dosage: SC
     Route: 058
     Dates: start: 20080402, end: 20080402
  2. VIVAGLOBIN [Suspect]
     Indication: TRANSFUSION-RELATED IMMUNOMODULATION REACTION
     Dosage: SC
     Route: 058
     Dates: start: 20080402, end: 20080402
  3. VIVAGLOBIN [Suspect]
     Indication: AMYLOIDOSIS
     Dosage: SC
     Route: 058
     Dates: start: 20080325
  4. VIVAGLOBIN [Suspect]
     Indication: TRANSFUSION-RELATED IMMUNOMODULATION REACTION
     Dosage: SC
     Route: 058
     Dates: start: 20080325

REACTIONS (2)
  - MENINGITIS ASEPTIC [None]
  - PUNCTURE SITE HAEMORRHAGE [None]
